FAERS Safety Report 8722114 (Version 2)
Quarter: 2012Q4

REPORT INFORMATION
  Report Type: 
  Country: IT (occurrence: IT)
  Receive Date: 20120814
  Receipt Date: 20120905
  Transmission Date: 20130627
  Serious: Yes (Hospitalization)
  Sender: FDA-Public Use
  Company Number: IT-SANOFI-AVENTIS-2012SA057453

PATIENT
  Age: 78 Year
  Sex: Male

DRUGS (6)
  1. LASIX [Suspect]
     Indication: CHRONIC RENAL FAILURE
     Dosage: Dose:1 unit(s)
     Route: 048
     Dates: start: 20110628
  2. IRBESARTAN [Suspect]
     Indication: HYPERTENSION
     Route: 048
     Dates: start: 20110628, end: 20120627
  3. ENAPREN [Suspect]
     Indication: HYPERTENSION
     Dosage: strength- 5 mg tablet Dose:1 unit(s)
     Route: 048
     Dates: start: 20110628
  4. TAMSULOSIN HYDROCHLORIDE [Suspect]
     Indication: DRUG USE FOR UNKNOWN INDICATION
     Dosage: strength- 0.4 mg hard capsules modified release
     Route: 048
     Dates: start: 20110628
  5. PARIET [Concomitant]
     Dosage: strength: 20 mg
  6. ASCRIPTIN [Concomitant]

REACTIONS (3)
  - Presyncope [Recovering/Resolving]
  - Tachycardia [Recovering/Resolving]
  - Orthostatic hypotension [Recovering/Resolving]
